FAERS Safety Report 16041830 (Version 1)
Quarter: 2019Q1

REPORT INFORMATION
  Report Type: Spontaneous
  Country: US (occurrence: US)
  Receive Date: 20190206
  Receipt Date: 20190206
  Transmission Date: 20190418
  Serious: Yes (Other)
  Sender: FDA-Public Use
  Company Number: None

PATIENT
  Age: 74 Year
  Sex: Female

DRUGS (1)
  1. XOLAIR [Suspect]
     Active Substance: OMALIZUMAB
     Indication: IDIOPATHIC URTICARIA
     Dosage: ?          OTHER FREQUENCY:EVERY 28 DAYS;?
     Route: 030
     Dates: start: 20180302, end: 20181214

REACTIONS (6)
  - Swelling [None]
  - Angioedema [None]
  - Swelling face [None]
  - Erythema [None]
  - Eye swelling [None]
  - Peripheral swelling [None]

NARRATIVE: CASE EVENT DATE: 20190114
